FAERS Safety Report 8873370 (Version 1)
Quarter: 2012Q4

REPORT INFORMATION
  Report Type: 
  Country: US (occurrence: US)
  Receive Date: 20121026
  Receipt Date: 20121026
  Transmission Date: 20130627
  Serious: No
  Sender: FDA-Public Use
  Company Number: US-AMGEN-USASP2012050266

PATIENT
  Sex: Female

DRUGS (7)
  1. ENBREL [Suspect]
     Indication: PRODUCT USED FOR UNKNOWN INDICATION
     Dosage: 50 mg, qwk
     Route: 058
  2. LEVOXYL [Concomitant]
     Dosage: 100 mug, UNK
  3. NORTRIPTYLIN [Concomitant]
     Dosage: 25 mg, UNK
  4. SUMAVEL DOSEPRO [Concomitant]
     Dosage: 6 mg/0.5, UNK
  5. RELPAX [Concomitant]
     Dosage: 20 mg, UNK
  6. VITAMIN B12                        /00056201/ [Concomitant]
     Dosage: 1000 UNK, UNK
  7. CALCIUM                            /00060701/ [Concomitant]
     Dosage: 500 UNK, UNK

REACTIONS (1)
  - Injection site erythema [Recovered/Resolved]
